FAERS Safety Report 6511433-1 (Version None)
Quarter: 2009Q4

REPORT INFORMATION
  Report Type: 
  Country: None (occurrence: None)
  Receive Date: 20091222
  Receipt Date: 20090316
  Transmission Date: 20100525
  Serious: No
  Sender: FDA-Public Use
  Company Number: US-ASTRAZENECA-2009UW06759

PATIENT
  Age: 73 Year
  Sex: Female

DRUGS (3)
  1. CRESTOR [Suspect]
     Route: 048
     Dates: start: 20090103, end: 20090201
  2. ZESTRIL [Concomitant]
     Route: 048
  3. ASPIRIN [Concomitant]

REACTIONS (2)
  - DIARRHOEA [None]
  - MUSCLE SPASMS [None]
